FAERS Safety Report 8586843-1 (Version None)
Quarter: 2012Q3

REPORT INFORMATION
  Report Type: 
  Country: None (occurrence: None)
  Receive Date: 20120810
  Receipt Date: 20120514
  Transmission Date: 20120928
  Serious: No
  Sender: FDA-Public Use
  Company Number: US-MYLANLABS-2012S1003249

PATIENT
  Age: 57 Year
  Sex: Male

DRUGS (24)
  1. MORPHINE SULFATE [Suspect]
     Indication: PAIN
     Dates: start: 20111125
  2. MORPHINE SULFATE [Suspect]
     Dates: start: 20111125
  3. ASPIRIN [Concomitant]
  4. GEMFIBROZIL [Concomitant]
  5. MIRTAZAPINE [Concomitant]
  6. MORPHINE SULFATE [Suspect]
     Indication: BACK PAIN
     Dates: start: 20111125
  7. MORPHINE SULFATE [Suspect]
     Indication: INTERVERTEBRAL DISC DEGENERATION
     Dates: start: 20111125
  8. OMEPRAZOLE [Concomitant]
  9. LOVASTATIN [Concomitant]
  10. HYDROCODONE [Concomitant]
     Indication: PAIN
     Dosage: 10/325MG
  11. MORPHINE SULFATE [Suspect]
     Dates: start: 20111125
  12. MORPHINE SULFATE [Suspect]
     Dates: start: 20111125
  13. LEVOTHYROXINE SODIUM [Concomitant]
  14. SOMA [Concomitant]
     Indication: MUSCLE SPASMS
  15. MIRALAX /00754501/ [Concomitant]
  16. MORPHINE SULFATE [Suspect]
     Dates: start: 20111125
  17. MORPHINE SULFATE [Suspect]
     Dates: start: 20111125
  18. TYLENOL [Concomitant]
  19. MORPHINE SULFATE [Suspect]
     Indication: OSTEOARTHRITIS
     Dates: start: 20111125
  20. TIZANIDINE HYDROCHLORIDE [Concomitant]
  21. TRAZODONE HYDROCHLORIDE [Concomitant]
  22. MORPHINE SULFATE [Suspect]
     Indication: NECK PAIN
     Dates: start: 20111125
  23. LISINOPRIL [Concomitant]
  24. OSTEO BI-FLEX [Concomitant]

REACTIONS (5)
  - DRUG INEFFECTIVE [None]
  - NECK PAIN [None]
  - ABDOMINAL DISCOMFORT [None]
  - FUNCTIONAL GASTROINTESTINAL DISORDER [None]
  - BACK PAIN [None]
